FAERS Safety Report 9723803 (Version 1)
Quarter: 2013Q4

REPORT INFORMATION
  Report Type: Spontaneous
  Country: SI (occurrence: SI)
  Receive Date: 20131202
  Receipt Date: 20131202
  Transmission Date: 20140711
  Serious: Yes (Life-Threatening, Hospitalization)
  Sender: FDA-Public Use
  Company Number: SI-ROXANE LABORATORIES, INC.-2013-RO-01873RO

PATIENT
  Age: 41 Year
  Sex: Female

DRUGS (6)
  1. LITHIUM CARBONATE [Suspect]
     Indication: DEPRESSION
     Dosage: 30 G
  2. LITHIUM CARBONATE [Suspect]
     Indication: PSYCHOTIC DISORDER DUE TO A GENERAL MEDICAL CONDITION
  3. QUETIAPINE FUMARATE [Suspect]
     Indication: DEPRESSION
  4. VENLAFAXINE [Suspect]
     Indication: DEPRESSION
     Dosage: 2100 MG
  5. VENLAFAXINE [Suspect]
     Indication: PSYCHOTIC DISORDER DUE TO A GENERAL MEDICAL CONDITION
  6. BUPROPION [Suspect]
     Indication: DEPRESSION

REACTIONS (5)
  - Poisoning deliberate [Recovered/Resolved]
  - Suicide attempt [Recovered/Resolved]
  - Vomiting [Unknown]
  - Hypothyroidism [Unknown]
  - Major depression [Unknown]
